FAERS Safety Report 4861872-X (Version None)
Quarter: 2005Q4

REPORT INFORMATION
  Report Type: 
  Country: None (occurrence: None)
  Receive Date: 20051130
  Receipt Date: 20050719
  Transmission Date: 20060501
  Serious: Yes (Other)
  Sender: FDA-Public Use
  Company Number: 200511441BWH

PATIENT

DRUGS (1)
  1. CIPRO [Suspect]

REACTIONS (1)
  - CONVULSION [None]
